FAERS Safety Report 24524920 (Version 3)
Quarter: 2025Q3

REPORT INFORMATION
  Report Type: Spontaneous
  Country: EU (occurrence: EU)
  Receive Date: 20241019
  Receipt Date: 20250829
  Transmission Date: 20251021
  Serious: Yes (Death, Other)
  Sender: SANOFI AVENTIS
  Company Number: EU-EMA-20160919-hksevhp-114744388

PATIENT
  Age: 54 Year
  Sex: Female

DRUGS (24)
  1. AFLIBERCEPT [Suspect]
     Active Substance: AFLIBERCEPT
     Indication: Metastases to liver
     Dosage: 2 MG/KG, Q3W
     Dates: start: 200512
  2. AFLIBERCEPT [Suspect]
     Active Substance: AFLIBERCEPT
     Indication: Invasive ductal breast carcinoma
  3. AFLIBERCEPT [Suspect]
     Active Substance: AFLIBERCEPT
     Indication: Metastases to heart
  4. DOCETAXEL [Suspect]
     Active Substance: DOCETAXEL
     Indication: Metastases to heart
     Dosage: 75 MG/M2, Q3W
     Dates: start: 200512
  5. DOCETAXEL [Suspect]
     Active Substance: DOCETAXEL
     Indication: Metastases to liver
  6. DOCETAXEL [Suspect]
     Active Substance: DOCETAXEL
     Indication: Invasive ductal breast carcinoma
  7. CAPECITABINE [Suspect]
     Active Substance: CAPECITABINE
     Indication: Invasive ductal breast carcinoma
  8. CAPECITABINE [Suspect]
     Active Substance: CAPECITABINE
     Indication: Metastases to liver
  9. EPIRUBICIN [Suspect]
     Active Substance: EPIRUBICIN
     Indication: Invasive ductal breast carcinoma
  10. EPIRUBICIN [Suspect]
     Active Substance: EPIRUBICIN
     Indication: Metastases to liver
  11. ETOPOSIDE [Suspect]
     Active Substance: ETOPOSIDE
     Indication: Metastases to liver
     Route: 048
     Dates: start: 2005
  12. ETOPOSIDE [Suspect]
     Active Substance: ETOPOSIDE
     Indication: Metastases to heart
  13. ETOPOSIDE [Suspect]
     Active Substance: ETOPOSIDE
     Indication: Invasive ductal breast carcinoma
  14. GEMCITABINE [Suspect]
     Active Substance: GEMCITABINE
     Indication: Metastases to liver
  15. GEMCITABINE [Suspect]
     Active Substance: GEMCITABINE
     Indication: Invasive ductal breast carcinoma
  16. MELPHALAN [Suspect]
     Active Substance: MELPHALAN
     Indication: Metastases to liver
     Route: 048
     Dates: start: 2005
  17. MELPHALAN [Suspect]
     Active Substance: MELPHALAN
     Indication: Metastases to heart
  18. MELPHALAN [Suspect]
     Active Substance: MELPHALAN
     Indication: Invasive ductal breast carcinoma
  19. PACLITAXEL [Suspect]
     Active Substance: PACLITAXEL
     Indication: Metastases to liver
  20. PACLITAXEL [Suspect]
     Active Substance: PACLITAXEL
     Indication: Invasive ductal breast carcinoma
  21. TRASTUZUMAB [Suspect]
     Active Substance: TRASTUZUMAB
     Indication: Invasive ductal breast carcinoma
  22. TRASTUZUMAB [Suspect]
     Active Substance: TRASTUZUMAB
     Indication: Metastases to liver
  23. VINORELBINE [Suspect]
     Active Substance: VINORELBINE TARTRATE
     Indication: Metastases to liver
  24. VINORELBINE [Suspect]
     Active Substance: VINORELBINE TARTRATE
     Indication: Invasive ductal breast carcinoma

REACTIONS (8)
  - Invasive ductal breast carcinoma [Fatal]
  - Hepatic failure [Fatal]
  - Malignant neoplasm progression [Fatal]
  - Renal atrophy [Fatal]
  - Therapeutic product effect incomplete [Fatal]
  - Thrombosis [Unknown]
  - Toxicity to various agents [Unknown]
  - Epistaxis [Unknown]

NARRATIVE: CASE EVENT DATE: 20060101
